FAERS Safety Report 19758840 (Version 2)
Quarter: 2021Q4

REPORT INFORMATION
  Report Type: Report from Study
  Country: JP (occurrence: JP)
  Receive Date: 20210829
  Receipt Date: 20211018
  Transmission Date: 20220303
  Serious: Yes (Death)
  Sender: FDA-Public Use
  Company Number: JP-UCBJ-CD202107497UCBPHAPROD

PATIENT
  Sex: Female
  Weight: 35 kg

DRUGS (5)
  1. LACOSAMIDE [Suspect]
     Active Substance: LACOSAMIDE
     Indication: Partial seizures with secondary generalisation
     Dosage: 50 MILLIGRAM, 2X/DAY (BID)
     Route: 048
     Dates: start: 20201014, end: 20201028
  2. NIFEDIPINE [Concomitant]
     Active Substance: NIFEDIPINE
     Indication: Product used for unknown indication
     Dosage: 1 GRAM, ONCE DAILY (QD)
     Route: 048
     Dates: end: 20201116
  3. ALFACALCIDOL [Concomitant]
     Active Substance: ALFACALCIDOL
     Indication: Product used for unknown indication
     Dosage: 0.5 MICROGRAM, ONCE DAILY (QD)
     Route: 048
     Dates: end: 20201116
  4. MAGNESIUM OXIDE [Concomitant]
     Active Substance: MAGNESIUM OXIDE
     Indication: Product used for unknown indication
     Dosage: 0.99 GRAM, ONCE DAILY (QD)
     Route: 048
     Dates: end: 20201116
  5. VALPROATE SODIUM [Concomitant]
     Active Substance: VALPROATE SODIUM
     Indication: Partial seizures with secondary generalisation
     Dosage: 0.5 GRAM, ONCE DAILY (QD)
     Route: 048
     Dates: end: 20201116

REACTIONS (2)
  - Marasmus [Fatal]
  - Therapeutic response decreased [Unknown]
